FAERS Safety Report 10375358 (Version 1)
Quarter: 2014Q1

REPORT INFORMATION
  Report Type: Spontaneous
  Country: US (occurrence: None)
  Receive Date: 20140306
  Receipt Date: 20140306
  Transmission Date: 20141002
  Serious: Yes (Hospitalization)
  Sender: FDA-Public Use
  Company Number: 163-21880-13010969

PATIENT
  Age: 72 Year
  Sex: Male
  Weight: 96.16 kg

DRUGS (8)
  1. REVLIMID (LENALIDOMIDE) (5 MILLIGRAM, CAPSULES) [Suspect]
     Indication: CHRONIC LYMPHOCYTIC LEUKAEMIA
     Dosage: 1 IN 1 D
     Dates: start: 201211
  2. ALLUPURINOL [Concomitant]
  3. CALCIUM CITRATE [Concomitant]
  4. FAMCICLOVIR [Concomitant]
  5. FISH OIL [Concomitant]
  6. METOPROLOL SUCCINATE [Concomitant]
  7. OMEPRAZOLE [Concomitant]
  8. VITAMIN B-12 (CYANOCOBALAMIN) [Concomitant]

REACTIONS (1)
  - Renal failure [None]
